FAERS Safety Report 11145287 (Version 1)
Quarter: 2015Q2

REPORT INFORMATION
  Report Type: Spontaneous
  Country: RU (occurrence: RU)
  Receive Date: 20150528
  Receipt Date: 20150528
  Transmission Date: 20150821
  Serious: Yes (Other)
  Sender: FDA-Public Use
  Company Number: RU-SA-2015SA068244

PATIENT
  Age: 65 Year
  Sex: Male

DRUGS (1)
  1. CLAFORAN [Suspect]
     Active Substance: CEFOTAXIME SODIUM
     Route: 030

REACTIONS (2)
  - Urticaria [Recovered/Resolved]
  - Asphyxia [Recovered/Resolved]
